FAERS Safety Report 5717419-9 (Version None)
Quarter: 2008Q2

REPORT INFORMATION
  Report Type: 
  Country: None (occurrence: None)
  Receive Date: 20080424
  Receipt Date: 20080424
  Transmission Date: 20081010
  Serious: Yes (Hospitalization)
  Sender: FDA-Public Use
  Company Number: None

PATIENT
  Age: 3 Year
  Sex: Male
  Weight: 21.6 kg

DRUGS (5)
  1. ARSENIC TRIOXIDE [Suspect]
     Indication: BRAIN STEM GLIOMA
     Dosage: 0.15 MG/KG/DOSE 3 X WEEK IV
     Route: 042
     Dates: start: 20080421, end: 20080421
  2. ONDANSETRON [Concomitant]
  3. DEXAMETHASONE [Concomitant]
  4. RANITIDINE [Concomitant]
  5. MANNITOL [Concomitant]

REACTIONS (2)
  - CENTRAL NERVOUS SYSTEM NECROSIS [None]
  - NEOPLASM PROGRESSION [None]
